FAERS Safety Report 18709783 (Version 6)
Quarter: 2021Q2

REPORT INFORMATION
  Report Type: Report from Study
  Country: DE (occurrence: DE)
  Receive Date: 20210106
  Receipt Date: 20210422
  Transmission Date: 20210717
  Serious: Yes (Hospitalization, Other)
  Sender: FDA-Public Use
  Company Number: DE-BRISTOL-MYERS SQUIBB COMPANY-BMS-2020-110736

PATIENT
  Age: 77 Year
  Sex: Male
  Weight: 72 kg

DRUGS (19)
  1. PREDNISOLON [PREDNISOLONE] [Concomitant]
     Active Substance: PREDNISOLONE
     Indication: IMMUNE-MEDIATED ARTHRITIS
     Dosage: 20 MILLIGRAM
     Route: 048
     Dates: start: 20201116, end: 20201116
  2. PREDNISOLON [PREDNISOLONE] [Concomitant]
     Active Substance: PREDNISOLONE
     Dosage: 40 MILLIGRAM
     Route: 048
     Dates: start: 20201117, end: 20201119
  3. PREDNISOLON [PREDNISOLONE] [Concomitant]
     Active Substance: PREDNISOLONE
     Dosage: 10 MILLIGRAM
     Route: 048
     Dates: start: 20201122, end: 20201128
  4. PREDNISOLON [PREDNISOLONE] [Concomitant]
     Active Substance: PREDNISOLONE
     Dosage: 8 MILLIGRAM
     Route: 048
     Dates: start: 20201217, end: 20201220
  5. ARCOXIA [Concomitant]
     Active Substance: ETORICOXIB
     Indication: IMMUNE-MEDIATED ARTHRITIS
     Dosage: UNK
     Route: 048
     Dates: start: 20201021, end: 20201218
  6. NIVOLUMAB [Suspect]
     Active Substance: NIVOLUMAB
     Indication: MALIGNANT MELANOMA
     Dosage: 480 MILLIGRAM, Q4WK
     Route: 042
     Dates: start: 20200916, end: 20201209
  7. BMS?986249?01 [Suspect]
     Active Substance: BMS-986249
     Indication: MALIGNANT MELANOMA
     Dosage: 1200 MILLIGRAM, Q8WK
     Route: 065
     Dates: start: 20200916, end: 20201111
  8. VOLTAREN [DICLOFENAC] [Concomitant]
     Active Substance: DICLOFENAC SODIUM
     Indication: IMMUNE-MEDIATED ARTHRITIS
     Dosage: UNK
     Route: 061
     Dates: start: 20201104
  9. RAMIPRIL. [Concomitant]
     Active Substance: RAMIPRIL
     Indication: PRODUCT USED FOR UNKNOWN INDICATION
     Dosage: 5 MILLIGRAM
     Route: 047
     Dates: start: 20200824
  10. ACETYLSALICYLATE SODIUM [Concomitant]
     Active Substance: ASPIRIN SODIUM
     Indication: PRODUCT USED FOR UNKNOWN INDICATION
     Dosage: 100 MILLIGRAM
     Route: 048
     Dates: start: 20200824
  11. PREDNISOLON [PREDNISOLONE] [Concomitant]
     Active Substance: PREDNISOLONE
     Dosage: 6 MILLIGRAM
     Route: 048
     Dates: start: 20201221, end: 20201229
  12. PREDNISOLON [PREDNISOLONE] [Concomitant]
     Active Substance: PREDNISOLONE
     Dosage: 8 MILLIGRAM
     Route: 048
     Dates: start: 20201129, end: 20201205
  13. BEPANTHENE [Concomitant]
     Active Substance: DEXPANTHENOL
     Indication: DERMATITIS ALLERGIC
     Dosage: 1 DOSAGE FORM = 2 UNIT NOS
     Route: 061
     Dates: start: 20200921
  14. PREDNISOLON [PREDNISOLONE] [Concomitant]
     Active Substance: PREDNISOLONE
     Dosage: 20 MILLIGRAM
     Route: 048
     Dates: start: 20201120, end: 20201121
  15. PANTOPRAZOL [PANTOPRAZOLE] [Concomitant]
     Active Substance: PANTOPRAZOLE
     Indication: PRODUCT USED FOR UNKNOWN INDICATION
     Dosage: 40 MILLIGRAM
     Route: 048
     Dates: start: 20201116
  16. PREDNISOLON [PREDNISOLONE] [Concomitant]
     Active Substance: PREDNISOLONE
     Dosage: 6 MILLIGRAM
     Route: 048
     Dates: start: 20201206, end: 20201209
  17. PREDNISOLON [PREDNISOLONE] [Concomitant]
     Active Substance: PREDNISOLONE
     Dosage: 5 MILLIGRAM
     Route: 048
     Dates: start: 20201210, end: 20201216
  18. HCT [Concomitant]
     Active Substance: HYDROCHLOROTHIAZIDE
     Indication: PRODUCT USED FOR UNKNOWN INDICATION
     Dosage: 12.5 MILLIGRAM
     Route: 048
     Dates: start: 20200824
  19. SOLARAZE [Concomitant]
     Active Substance: DICLOFENAC SODIUM
     Indication: PRODUCT USED FOR UNKNOWN INDICATION
     Dosage: 1 DOSAGE FORM = 1 UNIT NOS
     Route: 061
     Dates: start: 20200615

REACTIONS (1)
  - Immune-mediated enterocolitis [Recovered/Resolved]

NARRATIVE: CASE EVENT DATE: 20201222
